FAERS Safety Report 13955391 (Version 1)
Quarter: 2017Q3

REPORT INFORMATION
  Report Type: Spontaneous
  Country: US (occurrence: US)
  Receive Date: 20170911
  Receipt Date: 20170911
  Transmission Date: 20171128
  Serious: No
  Sender: FDA-Public Use
  Company Number: US-LEXICON PHARMACEUTICALS, INC-17-1606-00761

PATIENT
  Age: 71 Year
  Sex: Female

DRUGS (19)
  1. GABAPENTIN [Concomitant]
  2. OXYCODONE [Concomitant]
     Active Substance: OXYCODONE
  3. PRILOSEC [Concomitant]
  4. CULTURELLE [Concomitant]
     Active Substance: LACTOBACILLUS RHAMNOSUS
  5. TELOTRISTAT ETHYL [Suspect]
     Active Substance: TELOTRISTAT ETHYL
     Indication: CARCINOID SYNDROME
     Route: 048
     Dates: start: 20170623
  6. LOMOTIL [Concomitant]
     Active Substance: ATROPINE SULFATE\DIPHENOXYLATE HYDROCHLORIDE
  7. ZENPEP [Concomitant]
     Active Substance: PANCRELIPASE AMYLASE\PANCRELIPASE LIPASE\PANCRELIPASE PROTEASE
  8. MULTI COMPLETE [Concomitant]
  9. VICODIN [Concomitant]
     Active Substance: ACETAMINOPHEN\HYDROCODONE BITARTRATE
  10. GAS RELIEF [Concomitant]
     Active Substance: DIMETHICONE
  11. ALLEGRA [Concomitant]
  12. ATIVAN [Concomitant]
  13. WELCHOL [Concomitant]
     Active Substance: COLESEVELAM HYDROCHLORIDE
  14. SANDOSTATIN [Concomitant]
     Active Substance: OCTREOTIDE ACETATE
  15. HUMIRA [Concomitant]
  16. ZOFRAN [Concomitant]
  17. POTASSIUM [Concomitant]
     Active Substance: POTASSIUM
  18. PEPTO-BISMOL [Concomitant]
     Active Substance: BISMUTH SUBSALICYLATE
  19. IMODIUM [Concomitant]

REACTIONS (1)
  - Epigastric discomfort [Not Recovered/Not Resolved]

NARRATIVE: CASE EVENT DATE: 20170623
